FAERS Safety Report 10706652 (Version 1)
Quarter: 2015Q1

REPORT INFORMATION
  Report Type: Spontaneous
  Country: US (occurrence: None)
  Receive Date: 20150109
  Receipt Date: 20150109
  Transmission Date: 20150721
  Serious: Yes (Disabling)
  Sender: FDA-Public Use
  Company Number: None

PATIENT
  Age: 62 Year
  Sex: Male
  Weight: 86.18 kg

DRUGS (1)
  1. INVOKANA [Suspect]
     Active Substance: CANAGLIFLOZIN
     Indication: DIABETES MELLITUS
     Dosage: 1 PILL A DAY  ONCE DAILY  TAKEN BY MOUTH
     Route: 048
     Dates: start: 20141104, end: 20141229

REACTIONS (3)
  - Balanoposthitis [None]
  - Pain [None]
  - Fungal infection [None]

NARRATIVE: CASE EVENT DATE: 20141221
